FAERS Safety Report 11986824 (Version 1)
Quarter: 2016Q1

REPORT INFORMATION
  Report Type: Spontaneous
  Country: US (occurrence: US)
  Receive Date: 20160202
  Receipt Date: 20160202
  Transmission Date: 20160526
  Serious: Yes (Other)
  Sender: FDA-Public Use
  Company Number: US-UCBSA-2014014099

PATIENT
  Age: 25 Year
  Sex: Female

DRUGS (2)
  1. KEPPRA [Suspect]
     Active Substance: LEVETIRACETAM
     Indication: PRODUCT USED FOR UNKNOWN INDICATION
     Dosage: 1000 MG, 2X/DAY (BID)
  2. KEPPRA [Suspect]
     Active Substance: LEVETIRACETAM
     Dosage: 500 MG, 2X/DAY (BID)

REACTIONS (16)
  - Seizure [Recovered/Resolved]
  - Heart rate irregular [Unknown]
  - Stress [Unknown]
  - Breast feeding [Unknown]
  - Chest pain [Recovered/Resolved]
  - Weight decreased [Recovered/Resolved]
  - Partial seizures [Recovered/Resolved]
  - Syncope [Unknown]
  - Weight increased [Unknown]
  - Somnambulism [Unknown]
  - Abnormal behaviour [Unknown]
  - Migraine [Unknown]
  - Blood pressure decreased [Unknown]
  - Eating disorder [Unknown]
  - Drug ineffective [Unknown]
  - Heart rate decreased [Unknown]
